FAERS Safety Report 16653151 (Version 1)
Quarter: 2019Q3

REPORT INFORMATION
  Report Type: Spontaneous
  Country: US (occurrence: US)
  Receive Date: 20190731
  Receipt Date: 20190731
  Transmission Date: 20191004
  Serious: Yes (Other)
  Sender: FDA-Public Use
  Company Number: US-SA-2019SA204433

PATIENT
  Age: 64 Year
  Sex: Male

DRUGS (1)
  1. ADMELOG [Suspect]
     Active Substance: INSULIN LISPRO
     Indication: TYPE 2 DIABETES MELLITUS
     Dosage: 14 MG, UNK
     Route: 065

REACTIONS (3)
  - Disability [Unknown]
  - Wrong technique in product usage process [Unknown]
  - Product dose omission [Unknown]
